FAERS Safety Report 8614799-1 (Version None)
Quarter: 2012Q3

REPORT INFORMATION
  Report Type: 
  Country: None (occurrence: None)
  Receive Date: 20120823
  Receipt Date: 20120809
  Transmission Date: 20120928
  Serious: Yes (Other)
  Sender: FDA-Public Use
  Company Number: JP-MERCK-1208JPN004397

PATIENT
  Age: 67 Year
  Sex: Male

DRUGS (1)
  1. JANUVIA [Suspect]
     Dosage: DAILY DOSAGE UNKNOWN
     Route: 048
     Dates: start: 20120601

REACTIONS (1)
  - PANCYTOPENIA [None]
